FAERS Safety Report 8246670-1 (Version None)
Quarter: 2012Q1

REPORT INFORMATION
  Report Type: 
  Country: None (occurrence: None)
  Receive Date: 20120330
  Receipt Date: 20120320
  Transmission Date: 20120608
  Serious: Yes (Hospitalization)
  Sender: FDA-Public Use
  Company Number: US-JNJFOC-20120310602

PATIENT
  Sex: Male
  Weight: 49.3 kg

DRUGS (21)
  1. ASCORBIC ACID [Concomitant]
  2. GROWTH HORMONE [Concomitant]
  3. CALCIUM AND VITAMIN D [Concomitant]
  4. OMEPRAZOLE [Concomitant]
  5. BENZOYL PEROXIDE [Concomitant]
     Route: 061
  6. LETROZOLE [Concomitant]
  7. ADAPALENE [Concomitant]
  8. FLUOXETINE [Concomitant]
  9. FOLIC ACID [Concomitant]
  10. REMICADE [Suspect]
     Indication: CROHN'S DISEASE
     Route: 042
     Dates: start: 20090606, end: 20090817
  11. ACETAMINOPHEN [Concomitant]
  12. DAPSONE [Concomitant]
     Route: 061
  13. LEVOTHYROXINE SODIUM [Concomitant]
  14. ANTIBIOTICS [Concomitant]
     Indication: INFLAMMATORY BOWEL DISEASE
  15. HUMIRA [Concomitant]
     Dates: start: 20090821
  16. METHOTREXATE [Concomitant]
  17. CHOLECALCIFEROL [Concomitant]
  18. MULTI-VITAMINS [Concomitant]
  19. TAZAROTENE [Concomitant]
  20. PROBIOTICS [Concomitant]
  21. IBUPROFEN [Concomitant]

REACTIONS (1)
  - ANAL FISTULA [None]
